FAERS Safety Report 6105417-5 (Version None)
Quarter: 2009Q1

REPORT INFORMATION
  Report Type: 
  Country: None (occurrence: None)
  Receive Date: 20090226
  Receipt Date: 20090226
  Transmission Date: 20090719
  Serious: Yes (Other)
  Sender: FDA-Public Use
  Company Number: None

PATIENT
  Age: 62 Year
  Sex: Male
  Weight: 95.2 kg

DRUGS (2)
  1. DESENEX [Suspect]
     Indication: ANTIFUNGAL TREATMENT
     Dosage: UNK, QD, TOPICAL
     Route: 061
  2. ASPIRIN [Concomitant]

REACTIONS (3)
  - DIABETES MELLITUS [None]
  - HYPERCHOLESTEROLAEMIA [None]
  - INTENTIONAL DRUG MISUSE [None]
